FAERS Safety Report 14235055 (Version 1)
Quarter: 2017Q4

REPORT INFORMATION
  Report Type: Spontaneous
  Country: TR (occurrence: TR)
  Receive Date: 20171129
  Receipt Date: 20171129
  Transmission Date: 20180321
  Serious: Yes (Hospitalization, Other)
  Sender: FDA-Public Use
  Company Number: TR-NOVOPROD-573705

PATIENT
  Age: 4 Year
  Sex: Male
  Weight: 31.3 kg

DRUGS (5)
  1. NORDITROPIN [Suspect]
     Active Substance: SOMATROPIN
     Indication: PRADER-WILLI SYNDROME
     Dosage: 0.30
     Route: 058
     Dates: start: 2014
  2. GENKORT [Concomitant]
     Indication: ELECTROLYTE SUBSTITUTION THERAPY
     Dosage: HALF DOSE DAILY
     Route: 048
     Dates: start: 20140731
  3. ZANTAC [Concomitant]
     Active Substance: RANITIDINE HYDROCHLORIDE
     Indication: PROPHYLAXIS
     Dosage: UNK
     Route: 048
     Dates: start: 20140731
  4. CONVULEX                           /00052501/ [Concomitant]
     Active Substance: CARBAMAZEPINE
     Indication: SEIZURE
     Dosage: UNK
     Route: 048
     Dates: start: 20170101
  5. EUTHYROX [Concomitant]
     Active Substance: LEVOTHYROXINE SODIUM
     Indication: THYROID DISORDER
     Dosage: HALF DOSE DAILY
     Route: 048
     Dates: start: 20140731

REACTIONS (1)
  - Adenoidal hypertrophy [Recovered/Resolved]
